FAERS Safety Report 8925698 (Version 1)
Quarter: 2012Q4

REPORT INFORMATION
  Report Type: 
  Country: GB (occurrence: NL)
  Receive Date: 20121126
  Receipt Date: 20121126
  Transmission Date: 20130627
  Serious: Yes (Hospitalization, Other)
  Sender: FDA-Public Use
  Company Number: NL-009507513-1211USA006847

PATIENT
  Age: 47 Year
  Sex: Male
  Weight: 97 kg

DRUGS (2)
  1. RALTEGRAVIR POTASSIUM [Suspect]
     Indication: PRODUCT USED FOR UNKNOWN INDICATION
     Dosage: 60 DF, Once
     Route: 048
     Dates: start: 20120911, end: 20120911
  2. TRUVADA [Suspect]
     Indication: PRODUCT USED FOR UNKNOWN INDICATION
     Dosage: 30 DF, Once
     Route: 048
     Dates: start: 20120911, end: 20120911

REACTIONS (5)
  - Intentional overdose [Unknown]
  - Abdominal pain [Recovered/Resolved]
  - Somnolence [Recovered/Resolved]
  - Vomiting [Recovered/Resolved]
  - Blood creatine phosphokinase increased [Unknown]
